FAERS Safety Report 17963111 (Version 8)
Quarter: 2021Q2

REPORT INFORMATION
  Report Type: Spontaneous
  Country: US (occurrence: US)
  Receive Date: 20200630
  Receipt Date: 20210630
  Transmission Date: 20210717
  Serious: Yes (Other)
  Sender: FDA-Public Use
  Company Number: US-PFIZER INC-2020244155

PATIENT
  Age: 46 Year
  Sex: Female

DRUGS (3)
  1. GENOTROPIN [Suspect]
     Active Substance: SOMATROPIN
     Dosage: 0.4 MG, DAILY
     Dates: start: 20200704
  2. GENOTROPIN [Suspect]
     Active Substance: SOMATROPIN
     Dosage: 0.4 MG, DAILY
     Dates: start: 20190704
  3. GENOTROPIN [Suspect]
     Active Substance: SOMATROPIN
     Dosage: 0.2 MG, DAILY (0.2MG 7 DAYS A WEEK)
     Dates: start: 20200703

REACTIONS (5)
  - Oedema [Unknown]
  - Therapeutic response unexpected [Unknown]
  - Ankle fracture [Unknown]
  - Lower limb fracture [Unknown]
  - Fall [Unknown]
